FAERS Safety Report 10645571 (Version 3)
Quarter: 2014Q4

REPORT INFORMATION
  Report Type: Spontaneous
  Country: US (occurrence: US)
  Receive Date: 20141211
  Receipt Date: 20141229
  Transmission Date: 20150529
  Serious: Yes (Congenital Anomaly)
  Sender: FDA-Public Use
  Company Number: US-009507513-1412USA001923

PATIENT
  Age: 2 Day
  Sex: Female
  Weight: 5.9 kg

DRUGS (5)
  1. REYATAZ [Suspect]
     Active Substance: ATAZANAVIR SULFATE
     Dosage: TOTAL DAILY DOSE: 400MG/DAY
     Route: 064
     Dates: start: 20140729, end: 20141015
  2. ISENTRESS [Suspect]
     Active Substance: RALTEGRAVIR POTASSIUM
     Dosage: TOTAL DAILY DOSE: 800MG/DAY
     Route: 064
     Dates: start: 20140326, end: 20141015
  3. REYATAZ [Suspect]
     Active Substance: ATAZANAVIR SULFATE
     Dosage: TOTAL DAILY DOSE: 300MG/DAY
     Route: 064
     Dates: start: 20140326, end: 20140729
  4. TRUVADA [Suspect]
     Active Substance: EMTRICITABINE\TENOFOVIR DISOPROXIL FUMARATE
     Dosage: TOTAL DAILY DOSE: 1 TAB/CAPSULES
     Route: 064
     Dates: start: 20140326, end: 20141015
  5. NORVIR [Suspect]
     Active Substance: RITONAVIR
     Dosage: TOTAL DAILY DOSE: 100MG/DAY
     Route: 064
     Dates: start: 20140326, end: 20141015

REACTIONS (3)
  - Cardiac murmur [Unknown]
  - Foetal exposure during pregnancy [Recovered/Resolved]
  - Syncope [Unknown]

NARRATIVE: CASE EVENT DATE: 20141018
